FAERS Safety Report 10354346 (Version 1)
Quarter: 2014Q3

REPORT INFORMATION
  Report Type: Spontaneous
  Country: FR (occurrence: None)
  Receive Date: 20140729
  Receipt Date: 20140729
  Transmission Date: 20150326
  Serious: Yes (Hospitalization)
  Sender: FDA-Public Use
  Company Number: AUR-APL-2014-07980

PATIENT
  Age: 86 Year
  Sex: Female
  Weight: 46 kg

DRUGS (11)
  1. SERESTA [Suspect]
     Active Substance: OXAZEPAM
     Indication: PRODUCT USED FOR UNKNOWN INDICATION
     Route: 048
     Dates: start: 2012, end: 20140502
  2. MORPHINE SULFATE. [Suspect]
     Active Substance: MORPHINE SULFATE
     Indication: PRODUCT USED FOR UNKNOWN INDICATION
     Dosage: 5 MG (1 DF), 1X/DAY AS NEEDED, ORAL
     Route: 048
     Dates: start: 2012, end: 20140502
  3. LYRICA [Suspect]
     Active Substance: PREGABALIN
     Indication: OSTEOPOROSIS
     Route: 048
     Dates: start: 201403, end: 20140502
  4. FENTANYL. [Suspect]
     Active Substance: FENTANYL
     Indication: OSTEOPOROSIS
     Dosage: 1 DF, 1X/DAY OF 50 UG/HOUR (8.4 MG/21 CM2), TRANSDERMAL
     Route: 062
     Dates: start: 201403, end: 20140419
  5. DAFALGAN (PARACETAMOL) [Concomitant]
  6. PAROXETINE [Suspect]
     Active Substance: PAROXETINE\PAROXETINE HYDROCHLORIDE
     Indication: PRODUCT USED FOR UNKNOWN INDICATION
     Dosage: 30 MG (1.5 DF), DAILY, ORAL
     Route: 048
     Dates: end: 20140419
  7. VOGALENE (METOPIMAZINE) [Concomitant]
  8. MORPHINE SULFATE. [Suspect]
     Active Substance: MORPHINE SULFATE
     Indication: BONE PAIN
     Dosage: PRN
     Route: 048
     Dates: start: 20140417
  9. PERINDOPRIL (PERINDOPRIL) [Concomitant]
     Active Substance: PERINDOPRIL
  10. UVEDOSE (COLECALCIFEROL) (100000 IU (INTERNATIONL UNIT, ORAL SOLUTION) (COLECALCIFEROL)) [Concomitant]
     Active Substance: CHOLECALCIFEROL
  11. PASSIFLORA INCARNATA (PASSIFLORA INCARNATA) [Concomitant]

REACTIONS (6)
  - Disorientation [None]
  - Constipation [None]
  - Drug interaction [None]
  - Asthenia [None]
  - Hypoventilation [None]
  - Somnolence [None]

NARRATIVE: CASE EVENT DATE: 20140419
